FAERS Safety Report 6679033-0 (Version None)
Quarter: 2010Q2

REPORT INFORMATION
  Report Type: 
  Country: None (occurrence: None)
  Receive Date: 20100413
  Receipt Date: 20100329
  Transmission Date: 20101027
  Serious: Yes (Other)
  Sender: FDA-Public Use
  Company Number: PHHY2009PL15707

PATIENT
  Sex: Male
  Weight: 86 kg

DRUGS (7)
  1. EXELON [Suspect]
     Indication: DEMENTIA ALZHEIMER'S TYPE
     Dosage: 4.6 MG/24H
     Route: 062
  2. HALOPERIDOL [Concomitant]
     Dosage: 1 DF, BID
     Route: 048
     Dates: start: 20080501
  3. PERNAZENE [Concomitant]
     Dosage: 0-0-50 MG
     Route: 048
     Dates: start: 20080501
  4. VICEBROL [Concomitant]
  5. POLOCARD [Concomitant]
     Dosage: UNK
     Route: 048
     Dates: start: 20080501
  6. MADOPAR [Concomitant]
     Dosage: UNK
     Route: 048
     Dates: start: 20080501
  7. ALVENTA [Concomitant]
     Dosage: UNK
     Route: 048
     Dates: start: 20080501

REACTIONS (9)
  - ASTHENIA [None]
  - BALANCE DISORDER [None]
  - CONDITION AGGRAVATED [None]
  - DELIRIUM [None]
  - DEMENTIA ALZHEIMER'S TYPE [None]
  - HALLUCINATION [None]
  - INSOMNIA [None]
  - MOTOR DYSFUNCTION [None]
  - VERTIGO [None]
